FAERS Safety Report 25671387 (Version 3)
Quarter: 2025Q4

REPORT INFORMATION
  Report Type: Spontaneous
  Country: US (occurrence: US)
  Receive Date: 20250812
  Receipt Date: 20251002
  Transmission Date: 20260118
  Serious: No
  Sender: CALLIDITAS THERAPEUTICS AB
  Company Number: US-Calliditas-2025CAL00640

PATIENT
  Age: 44 Year
  Sex: Female

DRUGS (11)
  1. TARPEYO [Suspect]
     Active Substance: BUDESONIDE
     Indication: IgA nephropathy
     Route: 048
     Dates: start: 20240626, end: 20250912
  2. FARXIGA [Concomitant]
     Active Substance: DAPAGLIFLOZIN PROPANEDIOL
  3. VITAMIN D2 [Concomitant]
     Active Substance: ERGOCALCIFEROL
  4. SYNTHROID [Concomitant]
     Active Substance: LEVOTHYROXINE SODIUM
  5. LOVAZA [Concomitant]
     Active Substance: OMEGA-3-ACID ETHYL ESTERS
  6. RAMIPRIL [Concomitant]
     Active Substance: RAMIPRIL
  7. CEPHALEXIN [Concomitant]
     Active Substance: CEPHALEXIN
  8. MUPIROCIN [Concomitant]
     Active Substance: MUPIROCIN
  9. ARGININE [Concomitant]
     Active Substance: ARGININE
  10. BIOTIN [Concomitant]
     Active Substance: BIOTIN
  11. FERROUS SULFATE [Concomitant]
     Active Substance: FERROUS SULFATE

REACTIONS (8)
  - Product dose omission issue [Unknown]
  - Gastrooesophageal reflux disease [Not Recovered/Not Resolved]
  - Glycosuria [Not Recovered/Not Resolved]
  - Hirsutism [Not Recovered/Not Resolved]
  - Heavy menstrual bleeding [Not Recovered/Not Resolved]
  - Alopecia [Not Recovered/Not Resolved]
  - Anaemia [Unknown]
  - Pain in extremity [Not Recovered/Not Resolved]
